FAERS Safety Report 8250054-X (Version None)
Quarter: 2012Q2

REPORT INFORMATION
  Report Type: 
  Country: None (occurrence: None)
  Receive Date: 20120402
  Receipt Date: 20120329
  Transmission Date: 20120825
  Serious: Yes (Death, Life-Threatening)
  Sender: FDA-Public Use
  Company Number: DE-ASTRAZENECA-2012SE09989

PATIENT
  Age: 19902 Day
  Sex: Female

DRUGS (5)
  1. ASPIRIN [Suspect]
     Indication: ACUTE MYOCARDIAL INFARCTION
     Route: 048
     Dates: start: 20111202, end: 20111203
  2. CLOPIDOGREL [Suspect]
     Indication: ACUTE MYOCARDIAL INFARCTION
     Dosage: LOADING DOSE OF 300 MG; ONCE/SINGLE ADMINISTRATION
     Route: 048
     Dates: start: 20111203
  3. BRILLIQUE [Suspect]
     Indication: PERCUTANEOUS CORONARY INTERVENTION
     Route: 048
     Dates: start: 20111203
  4. BRILLIQUE [Suspect]
     Indication: ACUTE MYOCARDIAL INFARCTION
     Route: 048
     Dates: start: 20111203
  5. ASPIRIN [Suspect]
     Route: 042
     Dates: start: 20111202

REACTIONS (1)
  - CATHETER SITE HAEMORRHAGE [None]
